FAERS Safety Report 8206345-1 (Version None)
Quarter: 2012Q1

REPORT INFORMATION
  Report Type: 
  Country: None (occurrence: None)
  Receive Date: 20120313
  Receipt Date: 20120307
  Transmission Date: 20120608
  Serious: Yes (Hospitalization, Other)
  Sender: FDA-Public Use
  Company Number: PHHY2010CA60127

PATIENT
  Sex: Female

DRUGS (1)
  1. EXJADE [Suspect]
     Indication: MYELODYSPLASTIC SYNDROME
     Dosage: 2000 MG, QD
     Route: 048
     Dates: start: 20060101

REACTIONS (5)
  - ASTHENIA [None]
  - MALAISE [None]
  - CYSTITIS [None]
  - SERUM FERRITIN INCREASED [None]
  - CONCOMITANT DISEASE PROGRESSION [None]
